FAERS Safety Report 7007822-1 (Version None)
Quarter: 2010Q3

REPORT INFORMATION
  Report Type: 
  Country: None (occurrence: None)
  Receive Date: 20100922
  Receipt Date: 20100916
  Transmission Date: 20110219
  Serious: Yes (Hospitalization)
  Sender: FDA-Public Use
  Company Number: DE-MERCK-1009DEU00032

PATIENT
  Age: 70 Year
  Sex: Male
  Weight: 82 kg

DRUGS (7)
  1. VYTORIN [Suspect]
     Indication: HYPERLIPIDAEMIA
     Route: 048
     Dates: start: 20080101
  2. VYTORIN [Suspect]
     Route: 048
  3. VYTORIN [Suspect]
     Route: 048
     Dates: start: 20100101, end: 20100818
  4. AMLODIPINE [Concomitant]
     Route: 048
  5. BISOPROLOL [Concomitant]
     Route: 048
  6. CANDESARTAN CILEXETIL AND HYDROCHLOROTHIAZIDE [Concomitant]
     Route: 048
  7. ASPIRIN [Concomitant]
     Route: 048

REACTIONS (3)
  - ANKLE FRACTURE [None]
  - MUSCLE RUPTURE [None]
  - WRONG TECHNIQUE IN DRUG USAGE PROCESS [None]
